FAERS Safety Report 21556990 (Version 2)
Quarter: 2022Q4

REPORT INFORMATION
  Report Type: Spontaneous
  Country: LK (occurrence: LK)
  Receive Date: 20221104
  Receipt Date: 20221124
  Transmission Date: 20230113
  Serious: Yes (Other)
  Sender: FDA-Public Use
  Company Number: LK-MLMSERVICE-20221025-3869774-1

PATIENT
  Age: 29 Year
  Sex: Male

DRUGS (5)
  1. HYDROCORTISONE [Suspect]
     Active Substance: HYDROCORTISONE
     Indication: Premedication
     Route: 065
     Dates: start: 20210611
  2. HYDROCORTISONE [Suspect]
     Active Substance: HYDROCORTISONE
     Indication: Anaphylactic reaction
  3. EPINEPHRINE [Suspect]
     Active Substance: EPINEPHRINE
     Indication: Anaphylactic reaction
     Route: 058
     Dates: start: 20210611
  4. EPINEPHRINE [Suspect]
     Active Substance: EPINEPHRINE
     Indication: Premedication
     Route: 030
     Dates: start: 20210611
  5. IMMUNE GLOBULIN ANTIVENIN NOS [Suspect]
     Active Substance: IMMUNE GLOBULIN ANTIVENIN NOS
     Indication: Snake bite
     Dosage: 400 ML PER HOUR AT 11.40 P.M.
     Route: 065
     Dates: start: 20210611

REACTIONS (1)
  - Kounis syndrome [Recovered/Resolved]

NARRATIVE: CASE EVENT DATE: 20210613
